FAERS Safety Report 9372519 (Version 1)
Quarter: 2013Q2

REPORT INFORMATION
  Report Type: Spontaneous
  Country: US (occurrence: None)
  Receive Date: 20130607
  Receipt Date: 20130607
  Transmission Date: 20140414
  Serious: Yes (Hospitalization)
  Sender: FDA-Public Use
  Company Number: 2013036291

PATIENT
  Sex: Female
  Weight: 76.66 kg

DRUGS (1)
  1. BERINERT [Suspect]
     Dosage: EVERY 3-4 DAYS INTRAVENOUS  (NOT OTHERWISE SPECIFIED)
     Route: 042

REACTIONS (1)
  - Dehydration [None]
